FAERS Safety Report 7563369-5 (Version None)
Quarter: 2011Q2

REPORT INFORMATION
  Report Type: 
  Country: None (occurrence: None)
  Receive Date: 20110622
  Receipt Date: 20110613
  Transmission Date: 20111010
  Serious: Yes (Hospitalization)
  Sender: FDA-Public Use
  Company Number: A0931318A

PATIENT
  Age: 58 Year
  Sex: Male

DRUGS (2)
  1. MULTIPLE MEDICATIONS [Concomitant]
  2. CARVEDILOL [Suspect]
     Indication: THROMBOSIS PROPHYLAXIS
     Dosage: 6.25MG TWICE PER DAY
     Route: 048
     Dates: start: 20060801, end: 20070801

REACTIONS (3)
  - DRUG INEFFECTIVE [None]
  - CARDIAC DISORDER [None]
  - OFF LABEL USE [None]
